FAERS Safety Report 8436690-6 (Version None)
Quarter: 2012Q2

REPORT INFORMATION
  Report Type: 
  Country: None (occurrence: None)
  Receive Date: 20120614
  Receipt Date: 20120608
  Transmission Date: 20120825
  Serious: Yes (Other)
  Sender: FDA-Public Use
  Company Number: US-FRI-1000031186

PATIENT
  Sex: Female

DRUGS (1)
  1. THYROID TAB [Suspect]
     Indication: HYPOTHYROIDISM
     Dosage: 60 MG ALTERNATING WITH 90 MG DAILY
     Route: 048
     Dates: start: 20020101

REACTIONS (5)
  - LETHARGY [None]
  - DRUG INEFFECTIVE [None]
  - SUICIDAL IDEATION [None]
  - DEPRESSED MOOD [None]
  - ASTHENIA [None]
